FAERS Safety Report 14970881 (Version 1)
Quarter: 2018Q2

REPORT INFORMATION
  Report Type: Spontaneous
  Country: US (occurrence: US)
  Receive Date: 20180604
  Receipt Date: 20180604
  Transmission Date: 20180711
  Serious: Yes (Other)
  Sender: FDA-Public Use
  Company Number: US-MYLANLABS-2018M1036877

PATIENT
  Age: 55 Year
  Sex: Male

DRUGS (2)
  1. LITHIUM. [Concomitant]
     Active Substance: LITHIUM
     Indication: BIPOLAR DISORDER
     Route: 065
  2. DOXEPIN [Suspect]
     Active Substance: DOXEPIN
     Indication: BIPOLAR DISORDER
     Dosage: AT BEDTIME
     Route: 065

REACTIONS (4)
  - Tachycardia [Unknown]
  - Drug dependence [Unknown]
  - Drug abuse [Unknown]
  - Intentional product misuse [Unknown]
